FAERS Safety Report 13359747 (Version 1)
Quarter: 2017Q1

REPORT INFORMATION
  Report Type: Spontaneous
  Country: GR (occurrence: GR)
  Receive Date: 20170322
  Receipt Date: 20170322
  Transmission Date: 20170429
  Serious: Yes (Hospitalization)
  Sender: FDA-Public Use
  Company Number: GR-SA-2017SA044883

PATIENT
  Age: 24 Year
  Sex: Male

DRUGS (8)
  1. RIFAMPICIN [Suspect]
     Active Substance: RIFAMPIN
     Indication: PERITONEAL TUBERCULOSIS
     Route: 065
  2. RIFAMPICIN [Suspect]
     Active Substance: RIFAMPIN
     Indication: ENTERITIS
     Route: 065
  3. ETHAMBUTOL [Suspect]
     Active Substance: ETHAMBUTOL HYDROCHLORIDE
     Indication: ENTERITIS
     Route: 065
  4. ISONIAZID. [Suspect]
     Active Substance: ISONIAZID
     Indication: PERITONEAL TUBERCULOSIS
     Route: 065
  5. PYRAZINAMIDE. [Suspect]
     Active Substance: PYRAZINAMIDE
     Indication: PERITONEAL TUBERCULOSIS
     Route: 065
  6. ISONIAZID. [Suspect]
     Active Substance: ISONIAZID
     Indication: ENTERITIS
     Route: 065
  7. PYRAZINAMIDE. [Suspect]
     Active Substance: PYRAZINAMIDE
     Indication: ENTERITIS
     Route: 065
  8. ETHAMBUTOL [Suspect]
     Active Substance: ETHAMBUTOL HYDROCHLORIDE
     Indication: PERITONEAL TUBERCULOSIS
     Route: 065

REACTIONS (5)
  - Pyrexia [Recovered/Resolved]
  - Inappropriate schedule of drug administration [Unknown]
  - Night sweats [Recovered/Resolved]
  - Psoas abscess [Recovered/Resolved]
  - Abdominal distension [Recovered/Resolved]
